FAERS Safety Report 5814841-7 (Version None)
Quarter: 2008Q3

REPORT INFORMATION
  Report Type: 
  Country: None (occurrence: None)
  Receive Date: 20080718
  Receipt Date: 20080715
  Transmission Date: 20090109
  Serious: Yes (Death, Other)
  Sender: FDA-Public Use
  Company Number: FR-ABBOTT-08P-056-0462754-00

PATIENT
  Age: 73 Year
  Sex: Female

DRUGS (18)
  1. NORVIR [Suspect]
     Indication: HIV INFECTION
     Route: 048
     Dates: end: 20080618
  2. PRAVASTATIN [Suspect]
     Indication: HYPERCHOLESTEROLAEMIA
     Route: 048
     Dates: end: 20080616
  3. FOSAMPRENAVIR [Suspect]
     Indication: HIV INFECTION
     Route: 048
     Dates: end: 20080618
  4. POTASSIUM CHLORIDE [Suspect]
     Indication: HYPOKALAEMIA
     Route: 048
     Dates: end: 20080618
  5. FUROSEMIDE [Suspect]
     Indication: DRUG USE FOR UNKNOWN INDICATION
     Route: 048
     Dates: start: 20080612, end: 20080615
  6. EFAVIRENZ [Suspect]
     Indication: HIV INFECTION
     Route: 048
     Dates: end: 20080618
  7. ALFACALCIDOL [Suspect]
     Indication: DRUG USE FOR UNKNOWN INDICATION
     Dates: start: 20080531, end: 20080618
  8. SODIUM BICARBONATE [Suspect]
     Indication: DRUG USE FOR UNKNOWN INDICATION
     Route: 048
     Dates: end: 20080618
  9. TIANEPTINE [Suspect]
     Indication: DRUG USE FOR UNKNOWN INDICATION
     Route: 048
     Dates: start: 20080613, end: 20080628
  10. METRONIDAZOLE HCL [Concomitant]
     Indication: DRUG USE FOR UNKNOWN INDICATION
     Route: 048
     Dates: start: 20080528
  11. VALACYCLOVIR HCL [Concomitant]
     Indication: HIV INFECTION
     Route: 048
  12. BACTRIM [Concomitant]
     Indication: PROPHYLAXIS AGAINST HIV INFECTION
     Route: 048
  13. CALCIUM-SANDOZ [Concomitant]
     Indication: HYPOCALCAEMIA
     Route: 048
     Dates: start: 20080528
  14. OMEPRAZOLE SODIUM [Concomitant]
     Indication: DRUG USE FOR UNKNOWN INDICATION
     Route: 048
  15. LEVOTHYROXINE SODIUM [Concomitant]
     Indication: HYPOTHYROIDISM
     Route: 048
  16. HEPARINE CALCIC [Concomitant]
     Indication: DRUG USE FOR UNKNOWN INDICATION
     Route: 058
     Dates: start: 20080615
  17. PROPRANOLOL [Concomitant]
     Indication: HYPERTENSION
     Route: 048
  18. AZITHROMYCIN [Concomitant]
     Indication: DRUG USE FOR UNKNOWN INDICATION
     Dosage: 600 MG X 2 TWICE A WEEK
     Route: 048
     Dates: start: 20080522

REACTIONS (2)
  - RESPIRATORY TRACT CONGESTION [None]
  - RHABDOMYOLYSIS [None]
